FAERS Safety Report 8538541-8 (Version None)
Quarter: 2012Q3

REPORT INFORMATION
  Report Type: 
  Country: None (occurrence: None)
  Receive Date: 20120718
  Receipt Date: 20120718
  Transmission Date: 20120928
  Serious: No
  Sender: FDA-Public Use
  Company Number: None

PATIENT
  Sex: Male

DRUGS (6)
  1. MELATONIN [Concomitant]
  2. ALPRAZOLE [Concomitant]
  3. MG [Concomitant]
  4. SUCLARFATE [Concomitant]
  5. DESIPRAMINE HYDROCHLORIDE [Suspect]
     Indication: INSOMNIA
     Dosage: 10 MG 2X A DAY ORAL
     Route: 048
  6. ANTROPROZALE [Concomitant]

REACTIONS (3)
  - NAUSEA [None]
  - FATIGUE [None]
  - CONFUSIONAL STATE [None]
